FAERS Safety Report 11291745 (Version 1)
Quarter: 2015Q3

REPORT INFORMATION
  Report Type: Spontaneous
  Country: US (occurrence: None)
  Receive Date: 20150721
  Receipt Date: 20150721
  Transmission Date: 20151125
  Serious: Yes (Life-Threatening, Disabling)
  Sender: FDA-Public Use
  Company Number: None

PATIENT
  Age: 77 Year
  Sex: Male
  Weight: 102.51 kg

DRUGS (14)
  1. CELECOXIB 200MG TEVA [Suspect]
     Active Substance: CELECOXIB
     Indication: BACK PAIN
     Route: 048
     Dates: start: 20140402, end: 20150710
  2. MEGESTROL ACETATE. [Concomitant]
     Active Substance: MEGESTROL ACETATE
  3. NAMENDA XR [Concomitant]
     Active Substance: MEMANTINE HYDROCHLORIDE
  4. ARICEPT [Concomitant]
     Active Substance: DONEPEZIL HYDROCHLORIDE
  5. LUPRON [Concomitant]
     Active Substance: LEUPROLIDE ACETATE
  6. RAPAFLO [Concomitant]
     Active Substance: SILODOSIN
  7. FLONASE [Concomitant]
     Active Substance: FLUTICASONE PROPIONATE
  8. TRAMADOL HCL [Concomitant]
     Active Substance: TRAMADOL HYDROCHLORIDE
  9. VESICARE [Concomitant]
     Active Substance: SOLIFENACIN SUCCINATE
  10. CENTRUM SILVER MULTI VITAMINS [Concomitant]
  11. MAG+ZINC [Concomitant]
  12. ASPIRIN. [Concomitant]
     Active Substance: ASPIRIN
  13. FISH OIL [Concomitant]
     Active Substance: FISH OIL
  14. CALCIUM [Concomitant]
     Active Substance: CALCIUM

REACTIONS (5)
  - Cerebrovascular accident [None]
  - Balance disorder [None]
  - Gait disturbance [None]
  - Memory impairment [None]
  - Cognitive disorder [None]
